FAERS Safety Report 4967711-0 (Version None)
Quarter: 2006Q2

REPORT INFORMATION
  Report Type: 
  Country: None (occurrence: None)
  Receive Date: 20060410
  Receipt Date: 20051004
  Transmission Date: 20061013
  Serious: Yes (Hospitalization, Other)
  Sender: FDA-Public Use
  Company Number: US-MERCK-0510USA03130

PATIENT
  Age: 53 Year
  Sex: Female
  Weight: 100 kg

DRUGS (11)
  1. VIOXX [Suspect]
     Indication: RHEUMATOID ARTHRITIS
     Route: 048
     Dates: start: 20001201, end: 20040106
  2. METOCLOPRAMIDE [Concomitant]
     Route: 065
  3. PROTONIX [Concomitant]
     Route: 065
  4. PHENERGAN (PROMETHAZINE HYDROCHLORIDE) [Concomitant]
     Route: 065
  5. LEVOXYL [Concomitant]
     Route: 065
  6. ALTACE [Concomitant]
     Route: 065
  7. NORVASC [Concomitant]
     Route: 065
  8. PROZAC [Concomitant]
     Route: 065
  9. XANAX [Concomitant]
     Route: 065
  10. ZYRTEC [Concomitant]
     Route: 065
  11. CRESTOR [Concomitant]
     Route: 065

REACTIONS (11)
  - ANGINA PECTORIS [None]
  - CEREBROVASCULAR ACCIDENT [None]
  - CHRONIC FATIGUE SYNDROME [None]
  - CORNEAL DISORDER [None]
  - HEART RATE IRREGULAR [None]
  - HYPERTENSION [None]
  - INJURY CORNEAL [None]
  - MYOCARDIAL INFARCTION [None]
  - OEDEMA [None]
  - SLEEP APNOEA SYNDROME [None]
  - TRANSIENT ISCHAEMIC ATTACK [None]
